FAERS Safety Report 8698929 (Version 2)
Quarter: 2012Q4

REPORT INFORMATION
  Report Type: 
  Country: US (occurrence: US)
  Receive Date: 20120802
  Receipt Date: 20120928
  Transmission Date: 20130627
  Serious: Yes (Hospitalization, Other)
  Sender: FDA-Public Use
  Company Number: US-ELI_LILLY_AND_COMPANY-US201207006793

PATIENT
  Age: 62 None
  Sex: Female

DRUGS (9)
  1. HUMULIN NPH [Suspect]
     Indication: TYPE 1 DIABETES MELLITUS
     Dosage: 70 u, qd
  2. HUMULIN NPH [Suspect]
     Dosage: 220 u, qd
     Dates: start: 20120718, end: 20120718
  3. HUMULIN NPH [Suspect]
     Dosage: 245 u, qd
     Dates: start: 20120719, end: 20120719
  4. HUMULIN NPH [Suspect]
     Dosage: 60 u, each morning
  5. HUMULIN NPH [Suspect]
     Dosage: 20 u, each evening
  6. HUMULIN REGULAR [Suspect]
     Indication: TYPE 1 DIABETES MELLITUS
     Dosage: 15 u, qd
  7. HUMULIN REGULAR [Suspect]
     Dosage: 10 u, qd
  8. HUMULIN REGULAR [Suspect]
     Dosage: UNK, prn
  9. ILETIN [Suspect]
     Indication: TYPE 1 DIABETES MELLITUS
     Dosage: UNK, unknown

REACTIONS (8)
  - Loss of consciousness [Unknown]
  - Breast cancer [Recovered/Resolved]
  - Retinal haemorrhage [Unknown]
  - Blindness unilateral [Recovered/Resolved]
  - Renal failure [Unknown]
  - Drug ineffective [Unknown]
  - Blood glucose increased [Unknown]
  - Expired drug administered [Recovered/Resolved]
